FAERS Safety Report 8423900-4 (Version None)
Quarter: 2012Q2

REPORT INFORMATION
  Report Type: 
  Country: None (occurrence: None)
  Receive Date: 20120608
  Receipt Date: 20120531
  Transmission Date: 20120825
  Serious: No
  Sender: FDA-Public Use
  Company Number: US-US-EMD SERONO, INC.-7076405

PATIENT
  Sex: Male
  Weight: 82 kg

DRUGS (1)
  1. REBIF [Suspect]
     Indication: MULTIPLE SCLEROSIS
     Route: 058
     Dates: start: 20110718

REACTIONS (7)
  - INJECTION SITE ERYTHEMA [None]
  - CENTRAL NERVOUS SYSTEM LESION [None]
  - ANXIETY [None]
  - CHILLS [None]
  - HEADACHE [None]
  - FATIGUE [None]
  - INFLUENZA LIKE ILLNESS [None]
